FAERS Safety Report 14475565 (Version 1)
Quarter: 2018Q1

REPORT INFORMATION
  Report Type: Report from Study
  Country: US (occurrence: US)
  Receive Date: 20180201
  Receipt Date: 20180201
  Transmission Date: 20180509
  Serious: Yes (Hospitalization, Other)
  Sender: FDA-Public Use
  Company Number: US-ASTRAZENECA-2015SE57021

PATIENT
  Age: 67 Year
  Sex: Female
  Weight: 124.7 kg

DRUGS (7)
  1. DIAZEPAM. [Concomitant]
     Active Substance: DIAZEPAM
     Indication: MUSCLE SPASMS
     Dosage: 10.0MG AS REQUIRED
  2. NEXIUM [Suspect]
     Active Substance: ESOMEPRAZOLE MAGNESIUM
     Indication: HIATUS HERNIA
     Route: 048
  3. B12 SHOT [Concomitant]
     Indication: VITAMIN B12
     Dosage: MONTHLY
  4. ADVIL [Concomitant]
     Active Substance: IBUPROFEN
     Dosage: UNKNOWN
  5. NEXIUM [Suspect]
     Active Substance: ESOMEPRAZOLE MAGNESIUM
     Indication: GASTROOESOPHAGEAL REFLUX DISEASE
     Route: 048
  6. FAMOTIDINE. [Concomitant]
     Active Substance: FAMOTIDINE
  7. REFRESH [Concomitant]
     Active Substance: UNSPECIFIED INGREDIENT
     Indication: DRY EYE
     Dosage: UNKNOWN

REACTIONS (13)
  - Gastric perforation [Unknown]
  - Alopecia [Unknown]
  - Drug dose omission [Not Recovered/Not Resolved]
  - Product use issue [Unknown]
  - Gait disturbance [Unknown]
  - Off label use [Unknown]
  - Retinal scar [Unknown]
  - Migraine with aura [Not Recovered/Not Resolved]
  - Diarrhoea [Recovered/Resolved]
  - Cataract [Unknown]
  - Throat irritation [Unknown]
  - Infection [Unknown]
  - Sinusitis [Not Recovered/Not Resolved]

NARRATIVE: CASE EVENT DATE: 2014
